FAERS Safety Report 25084783 (Version 3)
Quarter: 2025Q2

REPORT INFORMATION
  Report Type: Spontaneous
  Country: US (occurrence: US)
  Receive Date: 20250317
  Receipt Date: 20250523
  Transmission Date: 20250716
  Serious: No
  Sender: SANOFI AVENTIS
  Company Number: US-SA-2025SA075762

PATIENT
  Age: 51 Year
  Sex: Male

DRUGS (21)
  1. DUPIXENT [Suspect]
     Active Substance: DUPILUMAB
     Indication: Dermatitis
     Dosage: 300 MG, QOW
     Route: 058
     Dates: start: 20250228
  2. VITAMIN D3 [Concomitant]
     Active Substance: CHOLECALCIFEROL
  3. VITAMIN C [Concomitant]
     Active Substance: ASCORBIC ACID
  4. VITAMIN B12 [Concomitant]
     Active Substance: CYANOCOBALAMIN
  5. TRIAMCINOLONE [Concomitant]
     Active Substance: TRIAMCINOLONE
  6. TRIAMCINOLONE ACETONIDE [Concomitant]
     Active Substance: TRIAMCINOLONE ACETONIDE
  7. TREMFYA [Concomitant]
     Active Substance: GUSELKUMAB
  8. ROSUVASTATIN [Concomitant]
     Active Substance: ROSUVASTATIN
  9. ROSUVASTATIN [Concomitant]
     Active Substance: ROSUVASTATIN
  10. PREDNISONE [Concomitant]
     Active Substance: PREDNISONE
  11. ORENCIA [Concomitant]
     Active Substance: ABATACEPT
  12. ORENCIA [Concomitant]
     Active Substance: ABATACEPT
  13. OLMESARTAN MEDOXOMIL [Concomitant]
     Active Substance: OLMESARTAN MEDOXOMIL
  14. METHOTREXATE [Concomitant]
     Active Substance: METHOTREXATE
  15. METHOTREXATE [Concomitant]
     Active Substance: METHOTREXATE
  16. IRON [Concomitant]
     Active Substance: IRON
  17. CALCIUM [Concomitant]
     Active Substance: CALCIUM
  18. CALCIPOTRIENE [Concomitant]
     Active Substance: CALCIPOTRIENE
  19. FOLIC ACID [Concomitant]
     Active Substance: FOLIC ACID
  20. CYCLOBENZAPRINE [Concomitant]
     Active Substance: CYCLOBENZAPRINE
  21. ALEVE [Concomitant]
     Active Substance: NAPROXEN SODIUM

REACTIONS (2)
  - Sleep disorder due to a general medical condition [Not Recovered/Not Resolved]
  - Drug effective for unapproved indication [Unknown]

NARRATIVE: CASE EVENT DATE: 20250101
